FAERS Safety Report 13361161 (Version 1)
Quarter: 2017Q1

REPORT INFORMATION
  Report Type: Spontaneous
  Country: DE (occurrence: DE)
  Receive Date: 20170322
  Receipt Date: 20170322
  Transmission Date: 20170429
  Serious: Yes (Other)
  Sender: FDA-Public Use
  Company Number: DE-AMGEN-DEUSP2017030188

PATIENT
  Age: 48 Year
  Sex: Female

DRUGS (2)
  1. TOCTINO [Concomitant]
     Active Substance: ALITRETINOIN
     Indication: PSORIATIC ARTHROPATHY
     Dosage: 30 MG, UNK
     Route: 048
     Dates: start: 201610, end: 20170118
  2. ENBREL [Suspect]
     Active Substance: ETANERCEPT
     Indication: PSORIATIC ARTHROPATHY
     Dosage: 50 UNK, WEEKLY
     Route: 058
     Dates: start: 20170119, end: 20170216

REACTIONS (3)
  - Drug ineffective [Unknown]
  - Psoriatic arthropathy [Recovered/Resolved]
  - Condition aggravated [Recovered/Resolved]

NARRATIVE: CASE EVENT DATE: 20170119
